FAERS Safety Report 4514633-5 (Version None)
Quarter: 2004Q3

REPORT INFORMATION
  Report Type: 
  Country: None (occurrence: None)
  Receive Date: 20040927
  Receipt Date: 20040308
  Transmission Date: 20050211
  Serious: No
  Sender: FDA-Public Use
  Company Number: US068781

PATIENT
  Sex: Female

DRUGS (5)
  1. NEULASTA [Suspect]
     Indication: CHEMOTHERAPY
     Dosage: 1 IN 1 DAYS
     Dates: start: 20040219, end: 20040219
  2. NEUPOGEN [Suspect]
     Indication: CHEMOTHERAPY
     Dates: start: 20040305
  3. DOXORUBICIN HCL [Concomitant]
  4. CYCLOPHOSPHAMIDE [Concomitant]
  5. PACLITAXEL [Concomitant]

REACTIONS (8)
  - CONFUSIONAL STATE [None]
  - GASTRITIS [None]
  - INCREASED APPETITE [None]
  - MYALGIA [None]
  - PAIN [None]
  - PAIN OF SKIN [None]
  - PHOTOPHOBIA [None]
  - WHITE BLOOD CELL COUNT INCREASED [None]
